FAERS Safety Report 9645908 (Version 1)
Quarter: 2013Q4

REPORT INFORMATION
  Report Type: Spontaneous
  Country: US (occurrence: US)
  Receive Date: 20131025
  Receipt Date: 20131025
  Transmission Date: 20140711
  Serious: No
  Sender: FDA-Public Use
  Company Number: US-009507513-1310USA011799

PATIENT
  Sex: Female

DRUGS (1)
  1. LOTRIMIN ULTRA [Suspect]
     Indication: ONYCHOMYCOSIS
     Dosage: UNK, UNKNOWN
     Route: 061

REACTIONS (2)
  - Nail disorder [Not Recovered/Not Resolved]
  - Off label use [Not Recovered/Not Resolved]
